FAERS Safety Report 9455267 (Version 1)
Quarter: 2013Q3

REPORT INFORMATION
  Report Type: Spontaneous
  Country: US (occurrence: US)
  Receive Date: 20130813
  Receipt Date: 20130813
  Transmission Date: 20140515
  Serious: Yes (Hospitalization)
  Sender: FDA-Public Use
  Company Number: US-BAYER-2013-096277

PATIENT
  Age: 45 Year
  Sex: Female

DRUGS (9)
  1. YAZ [Suspect]
  2. PROTONIX [Concomitant]
     Dosage: 40 MG, UNK
  3. LISINOPRIL [Concomitant]
     Dosage: 5 MG, UNK
  4. KETOROLAC [Concomitant]
     Dosage: 10 MG, UNK
  5. MOTRIN [Concomitant]
  6. ADVIL [Concomitant]
  7. ZESTRIL [Concomitant]
  8. WYGESIC [Concomitant]
  9. XANAX [Concomitant]

REACTIONS (1)
  - Deep vein thrombosis [None]
